FAERS Safety Report 4880781-3 (Version None)
Quarter: 2006Q2

REPORT INFORMATION
  Report Type: 
  Country: None (occurrence: None)
  Receive Date: 20060111
  Receipt Date: 20050329
  Transmission Date: 20061013
  Serious: No
  Sender: FDA-Public Use
  Company Number: 2005S1000119

PATIENT
  Age: 21 Year

DRUGS (34)
  1. CUBICIN [Suspect]
     Indication: SYPHILITIC ENDOCARDITIS OF HEART VALVE
     Dosage: 400 MG;Q48H;IV
     Route: 042
     Dates: start: 20040817
  2. METOPROLOL [Concomitant]
  3. DILTIAZEM [Concomitant]
  4. SODIUM NITROPRUSSIDE [Concomitant]
  5. NOREPINEPHRINE [Concomitant]
  6. HYDRALAZINE [Concomitant]
  7. DESMOPRESSIN [Concomitant]
  8. MANNITOL [Concomitant]
  9. HEPARIN [Concomitant]
  10. WARFARIN SODIUM [Concomitant]
  11. PROTAMINE SULFATE [Concomitant]
  12. FAMOTIDINE [Concomitant]
  13. ONDANSETRON [Concomitant]
  14. PROCHLORPERAZINE [Concomitant]
  15. SIMETHICONE [Concomitant]
  16. ACETAMINOPHEN [Concomitant]
  17. ALBUMIN [Concomitant]
  18. PARACALCITOL [Concomitant]
  19. EPOETIN ALFA [Concomitant]
  20. POTASSIUM CHLORIDE [Concomitant]
  21. MAGNESIUM SULFATE [Concomitant]
  22. CALCIUM ACETATE [Concomitant]
  23. FERRLECIT [Concomitant]
  24. RIFAMPIN [Concomitant]
  25. VANCOMYCIN [Concomitant]
  26. GENTAMICIN [Concomitant]
  27. DIPHENHYDRAMINE [Concomitant]
  28. FENTANYL CITRATE [Concomitant]
  29. HYDROMORPHONE HCL [Concomitant]
  30. PERCOCET [Concomitant]
  31. NALOXONE [Concomitant]
  32. FLUOXETINE HCL [Concomitant]
  33. SENOKOT [Concomitant]
  34. SODIUM POLYSTYRENE [Concomitant]

REACTIONS (1)
  - INTERNATIONAL NORMALISED RATIO INCREASED [None]
